FAERS Safety Report 23626516 (Version 1)
Quarter: 2024Q1

REPORT INFORMATION
  Report Type: Spontaneous
  Country: RO (occurrence: RO)
  Receive Date: 20240313
  Receipt Date: 20240313
  Transmission Date: 20240410
  Serious: Yes (Other)
  Sender: FDA-Public Use
  Company Number: RO-IPSEN Group, Research and Development-2024-03778

PATIENT
  Age: 50 Year
  Sex: Male

DRUGS (4)
  1. LANREOTIDE ACETATE [Suspect]
     Active Substance: LANREOTIDE ACETATE
     Indication: Product used for unknown indication
     Dosage: 30 MG
     Route: 065
     Dates: start: 201711
  2. LANREOTIDE ACETATE [Suspect]
     Active Substance: LANREOTIDE ACETATE
     Dosage: 120 MG
     Route: 065
     Dates: start: 201808
  3. CAPECITABINE [Concomitant]
     Active Substance: CAPECITABINE
     Indication: Product used for unknown indication
     Dosage: 1500 MG/SQM
     Dates: start: 202103
  4. TEMOZOLOMIDE [Concomitant]
     Active Substance: TEMOZOLOMIDE
     Indication: Product used for unknown indication
     Dosage: 200 MG/SQM
     Dates: start: 202103

REACTIONS (5)
  - Pancreatic carcinoma [Unknown]
  - Metastases to liver [Unknown]
  - Blood chromogranin A increased [Unknown]
  - Drug ineffective [Unknown]
  - Neurone-specific enolase increased [Unknown]

NARRATIVE: CASE EVENT DATE: 20191001
